FAERS Safety Report 12892271 (Version 3)
Quarter: 2017Q1

REPORT INFORMATION
  Report Type: Spontaneous
  Country: US (occurrence: US)
  Receive Date: 20161028
  Receipt Date: 20170202
  Transmission Date: 20170428
  Serious: Yes (Other)
  Sender: FDA-Public Use
  Company Number: US-ALEXION PHARMACEUTICALS INC-A201608203

PATIENT
  Sex: Male

DRUGS (1)
  1. SOLIRIS [Suspect]
     Active Substance: ECULIZUMAB
     Indication: HAEMOLYTIC URAEMIC SYNDROME
     Dosage: UNK
     Route: 042

REACTIONS (3)
  - Suicide attempt [Unknown]
  - Depression [Unknown]
  - Substance abuse [Unknown]

NARRATIVE: CASE EVENT DATE: 201610
